FAERS Safety Report 6151944-4 (Version None)
Quarter: 2009Q2

REPORT INFORMATION
  Report Type: 
  Country: None (occurrence: None)
  Receive Date: 20090410
  Receipt Date: 20090407
  Transmission Date: 20091009
  Serious: Yes (Hospitalization)
  Sender: FDA-Public Use
  Company Number: FR-AMGEN-UK256525

PATIENT
  Sex: Male

DRUGS (5)
  1. PANITUMUMAB [Suspect]
     Indication: SQUAMOUS CELL CARCINOMA
     Route: 042
     Dates: start: 20071122
  2. ONDANSETRON [Concomitant]
     Route: 042
     Dates: start: 20071214
  3. PARACETAMOL [Concomitant]
     Route: 042
     Dates: start: 20071206, end: 20071207
  4. CISPLATIN [Concomitant]
     Route: 065
  5. FLUOROURACIL [Concomitant]
     Route: 065

REACTIONS (3)
  - ACNE PUSTULAR [None]
  - DEEP VEIN THROMBOSIS [None]
  - DERMATITIS ACNEIFORM [None]
